FAERS Safety Report 24428939 (Version 1)
Quarter: 2024Q4

REPORT INFORMATION
  Report Type: Spontaneous
  Country: JP (occurrence: JP)
  Receive Date: 20241011
  Receipt Date: 20241011
  Transmission Date: 20250114
  Serious: Yes (Death, Hospitalization)
  Sender: SANDOZ
  Company Number: JP-SANDOZ-SDZ2024JP086660

PATIENT
  Age: 5 Decade
  Sex: Female

DRUGS (2)
  1. RECLAST [Suspect]
     Active Substance: ZOLEDRONIC ACID
     Indication: Hypercalcaemia
     Dosage: (5 MILLIGRAM(S), IN 1 YEAR) INJECTION
     Route: 041
  2. ELCATONIN [Concomitant]
     Active Substance: ELCATONIN
     Indication: Hypercalcaemia
     Route: 065

REACTIONS (3)
  - Multiple organ dysfunction syndrome [Fatal]
  - Off label use [Fatal]
  - Tumour lysis syndrome [Unknown]
